FAERS Safety Report 23830313 (Version 1)
Quarter: 2024Q2

REPORT INFORMATION
  Report Type: Spontaneous
  Country: GB (occurrence: GB)
  Receive Date: 20240508
  Receipt Date: 20240508
  Transmission Date: 20240716
  Serious: Yes (Life-Threatening, Hospitalization, Other)
  Sender: FDA-Public Use
  Company Number: None

PATIENT
  Age: 86 Year
  Sex: Female
  Weight: 95 kg

DRUGS (19)
  1. AMITRIPTYLINE HYDROCHLORIDE [Suspect]
     Active Substance: AMITRIPTYLINE HYDROCHLORIDE
     Indication: Product used for unknown indication
     Dosage: 1 TABLET
     Route: 048
     Dates: start: 20210217, end: 20240118
  2. AMOXICILLIN [Concomitant]
     Active Substance: AMOXICILLIN
     Route: 048
     Dates: start: 20240126
  3. ASPIRIN [Concomitant]
     Active Substance: ASPIRIN
     Route: 048
     Dates: start: 20231228, end: 20240110
  4. ATORVASTATIN [Concomitant]
     Active Substance: ATORVASTATIN
     Route: 048
     Dates: start: 20240115
  5. BUPRENORPHINE [Concomitant]
     Active Substance: BUPRENORPHINE
     Dosage: APPLY
     Route: 062
     Dates: start: 20231115, end: 20231213
  6. DOXAZOSIN [Concomitant]
     Active Substance: DOXAZOSIN MESYLATE
     Route: 048
     Dates: start: 20230726
  7. FONDAPARINUX SODIUM [Concomitant]
     Active Substance: FONDAPARINUX SODIUM
     Dates: start: 20231226, end: 20240104
  8. GLYCERIN [Concomitant]
     Active Substance: GLYCERIN
     Route: 054
     Dates: start: 20240108, end: 20240108
  9. IBUPROFEN [Concomitant]
     Active Substance: IBUPROFEN
     Dosage: APPLY TO THE AFFECTED AREA(S) UP TO THREE TIMES...
     Route: 061
     Dates: start: 20220511
  10. LANSOPRAZOLE [Concomitant]
     Active Substance: LANSOPRAZOLE
     Route: 048
     Dates: start: 20181010, end: 20240118
  11. LOSARTAN [Concomitant]
     Active Substance: LOSARTAN
     Route: 048
     Dates: start: 20190211
  12. POLYETHYLENE GLYCOLS [Concomitant]
     Active Substance: POLYETHYLENE GLYCOLS
     Dosage: 1-2 SACHETS UP TO TWICE PER DAY, AS NECCESSARY
     Route: 048
     Dates: start: 20231204
  13. ACETAMINOPHEN [Concomitant]
     Active Substance: ACETAMINOPHEN
     Dosage: TAKE: NO MORE THAN 8 TABLET IN 24 HOURS. MINIMUM INTERVAL: 4 HOURS, AS NECCESSARY
     Route: 048
     Dates: start: 20181010
  14. SENNA [Concomitant]
     Active Substance: SENNA LEAF\SENNOSIDES\SENNOSIDES A AND B
     Dosage: 1-2 TABLET TAKE: NO MORE THAN 2 TABLET IN 24 HOURS, AS NECCESSARY
     Route: 048
     Dates: start: 20190211
  15. SODIUM CHLORIDE [Concomitant]
     Active Substance: SODIUM CHLORIDE
     Dates: start: 20231227, end: 20240115
  16. SPIRONOLACTONE [Concomitant]
     Active Substance: SPIRONOLACTONE
     Dosage: EVERY MORNING
     Route: 048
     Dates: start: 20240115
  17. TICAGRELOR [Concomitant]
     Active Substance: TICAGRELOR
     Route: 048
     Dates: start: 20231226, end: 20240110
  18. TINZAPARIN SODIUM [Concomitant]
     Active Substance: TINZAPARIN SODIUM
     Dates: start: 20240104, end: 20240115
  19. ZEROBASE [Concomitant]
     Dosage: USE AS DIRECTED
     Dates: start: 20181121

REACTIONS (2)
  - Bradycardia [Recovered/Resolved]
  - Atrioventricular block complete [Recovered/Resolved]
